APPROVED DRUG PRODUCT: PHENYTOIN SODIUM
Active Ingredient: PHENYTOIN SODIUM
Strength: 50MG/ML
Dosage Form/Route: INJECTABLE;INJECTION
Application: A089003 | Product #001
Applicant: FRESENIUS KABI USA LLC
Approved: May 31, 1985 | RLD: No | RS: No | Type: DISCN